FAERS Safety Report 12079188 (Version 1)
Quarter: 2016Q1

REPORT INFORMATION
  Report Type: Spontaneous
  Country: PL (occurrence: PL)
  Receive Date: 20160216
  Receipt Date: 20160216
  Transmission Date: 20160526
  Serious: Yes (Death, Hospitalization)
  Sender: FDA-Public Use
  Company Number: PL-CELGENE-POL-2016020655

PATIENT
  Age: 61 Year
  Sex: Female

DRUGS (1)
  1. REVLIMID [Suspect]
     Active Substance: LENALIDOMIDE
     Indication: PLASMA CELL MYELOMA
     Route: 048

REACTIONS (9)
  - Pneumonia [Fatal]
  - Thrombocytopenia [Unknown]
  - Hyponatraemia [Unknown]
  - Hypokalaemia [Unknown]
  - Skin lesion [Recovering/Resolving]
  - Leukopenia [Unknown]
  - Pyrexia [Recovering/Resolving]
  - Decubitus ulcer [Unknown]
  - Anaemia [Unknown]

NARRATIVE: CASE EVENT DATE: 20150726
